FAERS Safety Report 12961512 (Version 1)
Quarter: 2016Q4

REPORT INFORMATION
  Report Type: Not Available
  Country: IT (occurrence: IT)
  Receive Date: 20161121
  Receipt Date: 20161121
  Transmission Date: 20170207
  Serious: Yes (Hospitalization)
  Sender: FDA-Public Use
  Company Number: IT-MUNDIPHARMA DS AND PHARMACOVIGILANCE-GBR-2016-0041758

PATIENT
  Age: 78 Year
  Sex: Female

DRUGS (11)
  1. TARGIN [Suspect]
     Active Substance: NALOXONE HYDROCHLORIDE\OXYCODONE HYDROCHLORIDE
     Indication: DIABETIC NEUROPATHY
     Dosage: 2 POSOLOGIC UNITS/DAY (STRENGTH 5 MG/2.5 MG)
     Route: 048
     Dates: start: 20160307
  2. LUVION                             /00252501/ [Concomitant]
     Active Substance: CANRENONE
     Indication: OEDEMA DUE TO CARDIAC DISEASE
     Dosage: 50 MG, UNK
     Route: 048
     Dates: start: 20140108
  3. LASIX [Concomitant]
     Active Substance: FUROSEMIDE
     Indication: OEDEMA DUE TO CARDIAC DISEASE
     Dosage: 50 MG, UNK
     Route: 048
     Dates: start: 20140108
  4. LANTUS [Concomitant]
     Active Substance: INSULIN GLARGINE
     Indication: INSULIN-REQUIRING TYPE 2 DIABETES MELLITUS
     Dosage: 22 INTERNATIONAL UNITS
     Route: 058
     Dates: start: 20140108
  5. RANITIDINE. [Concomitant]
     Active Substance: RANITIDINE
     Indication: PROPHYLAXIS AGAINST GASTROINTESTINAL ULCER
     Dosage: 300 MG, UNK
     Route: 048
     Dates: start: 20160307
  6. LYRICA [Concomitant]
     Active Substance: PREGABALIN
     Indication: DIABETIC NEUROPATHY
     Dosage: 75 MG, UNK
     Route: 048
     Dates: start: 20140108
  7. MOVICOL [Concomitant]
     Active Substance: POLYETHYLENE GLYCOL 3350\POTASSIUM CHLORIDE\SODIUM BICARBONATE\SODIUM CHLORIDE
     Indication: ASTRINGENT THERAPY
     Dosage: 2 POSOLOGIC UNITS
     Route: 048
     Dates: start: 20160307
  8. ORAMORPH [Suspect]
     Active Substance: MORPHINE SULFATE
     Indication: DIABETIC NEUROPATHY
     Dosage: 1 POSOLOGIC UNIT/DAY
     Route: 048
     Dates: start: 20160307
  9. DIBASE [Concomitant]
     Active Substance: CHOLECALCIFEROL
     Indication: HYPOVITAMINOSIS
     Dosage: 5 UNIT, UNK
     Route: 048
     Dates: start: 20160307
  10. HUMALOG [Concomitant]
     Active Substance: INSULIN LISPRO
     Indication: INSULIN-REQUIRING TYPE 2 DIABETES MELLITUS
     Dosage: 16 IU, UNK
     Route: 058
     Dates: start: 20050121
  11. VENITRIN [Concomitant]
     Active Substance: NITROGLYCERIN
     Indication: CORONARY ARTERY INSUFFICIENCY
     Dosage: 5 MG, DAILY
     Route: 062
     Dates: start: 20160307

REACTIONS (1)
  - Conduct disorder [Recovering/Resolving]

NARRATIVE: CASE EVENT DATE: 20161014
